FAERS Safety Report 4588075-0 (Version None)
Quarter: 2005Q1

REPORT INFORMATION
  Report Type: 
  Country: None (occurrence: None)
  Receive Date: 20050216
  Receipt Date: 20050126
  Transmission Date: 20050727
  Serious: Yes (Other)
  Sender: FDA-Public Use
  Company Number: GBS050116371

PATIENT
  Age: 73 Year
  Sex: Female
  Weight: 57 kg

DRUGS (8)
  1. CEFACLOR [Suspect]
     Dosage: 375 MG/2 DAY
     Dates: start: 20041229
  2. ALBUTEROL [Concomitant]
  3. CODEINE PHOSPHATE [Concomitant]
  4. FOSAMAX [Concomitant]
  5. CO-DYDRAMOL [Concomitant]
  6. ASPIRIN [Concomitant]
  7. LEVOTHYROXINE [Concomitant]
  8. PREDNISOLONE [Concomitant]

REACTIONS (1)
  - DERMATITIS CONTACT [None]
